FAERS Safety Report 18886358 (Version 2)
Quarter: 2021Q1

REPORT INFORMATION
  Report Type: Spontaneous
  Country: US (occurrence: US)
  Receive Date: 20210212
  Receipt Date: 20210310
  Transmission Date: 20210420
  Serious: No
  Sender: FDA-Public Use
  Company Number: US-GLAXOSMITHKLINE-US2021029237

PATIENT
  Sex: Male

DRUGS (1)
  1. FLUTICASONE PROPIONATE+SALMETEROL XINAFOATE [Suspect]
     Active Substance: FLUTICASONE PROPIONATE\SALMETEROL XINAFOATE
     Indication: ASTHMA
     Dosage: 1 PUFF(S), BID (250/50 MCG)
     Route: 055

REACTIONS (10)
  - Cataract operation [Unknown]
  - Wrong technique in device usage process [Unknown]
  - Headache [Recovering/Resolving]
  - Extra dose administered [Unknown]
  - Illness [Recovering/Resolving]
  - Adverse reaction [Unknown]
  - Nausea [Recovering/Resolving]
  - Hypoacusis [Unknown]
  - Prescribed underdose [Unknown]
  - Product complaint [Unknown]
